FAERS Safety Report 5250835-0 (Version None)
Quarter: 2007Q1

REPORT INFORMATION
  Report Type: 
  Country: None (occurrence: None)
  Receive Date: 20070228
  Receipt Date: 20060713
  Transmission Date: 20070707
  Serious: Yes (Other)
  Sender: FDA-Public Use
  Company Number: US-GLAXOSMITHKLINE-A0612208A

PATIENT
  Age: 30 Year
  Sex: Male

DRUGS (5)
  1. LAMICTAL [Suspect]
     Indication: BIPOLAR DISORDER
     Dosage: 200MG TWICE PER DAY
     Route: 048
  2. LITHIUM CARBONATE [Concomitant]
  3. SELEGILINE HCL [Concomitant]
     Route: 050
  4. ADDERALL 10 [Concomitant]
  5. ZYPREXA [Concomitant]

REACTIONS (3)
  - CONDITION AGGRAVATED [None]
  - DEAFNESS [None]
  - DRUG INEFFECTIVE [None]
